FAERS Safety Report 24684380 (Version 1)
Quarter: 2024Q4

REPORT INFORMATION
  Report Type: Spontaneous
  Country: US (occurrence: US)
  Receive Date: 20241202
  Receipt Date: 20241202
  Transmission Date: 20250114
  Serious: No
  Sender: TARO
  Company Number: US-TARO PHARMACEUTICALS USA INC.-2023TAR01228

PATIENT

DRUGS (1)
  1. HYDROCORTISONE [Suspect]
     Active Substance: HYDROCORTISONE
     Indication: Rash
     Dosage: UNK, HE SAID HIS DOCTOR TOLD HIM TO ONLY USE IT ONCE DAILY, ONCE DAILY
     Route: 061
     Dates: start: 202310

REACTIONS (2)
  - Off label use [Unknown]
  - Drug ineffective [Unknown]
